FAERS Safety Report 7083490-8 (Version None)
Quarter: 2010Q4

REPORT INFORMATION
  Report Type: 
  Country: None (occurrence: None)
  Receive Date: 20101104
  Receipt Date: 20101015
  Transmission Date: 20110411
  Serious: Yes (Hospitalization)
  Sender: FDA-Public Use
  Company Number: US-BAYER-200941570NA

PATIENT
  Age: 31 Year
  Sex: Female
  Weight: 127 kg

DRUGS (8)
  1. YAZ [Suspect]
     Indication: PRODUCT USED FOR UNKNOWN INDICATION
     Route: 048
  2. YASMIN [Suspect]
     Indication: PRODUCT USED FOR UNKNOWN INDICATION
     Route: 048
     Dates: start: 20020101, end: 20060101
  3. IBUPROFEN [Concomitant]
  4. DIOVAN [Concomitant]
  5. AVELOX [Concomitant]
  6. ULTRAM [Concomitant]
  7. CELEXA [Concomitant]
  8. PROTINIX [Concomitant]

REACTIONS (1)
  - CHOLECYSTECTOMY [None]
